FAERS Safety Report 10008822 (Version 2)
Quarter: 2014Q1

REPORT INFORMATION
  Report Type: Spontaneous
  Country: US (occurrence: US)
  Receive Date: 20140312
  Receipt Date: 20140312
  Transmission Date: 20141002
  Serious: No
  Sender: FDA-Public Use
  Company Number: US-INCYTE CORPORATION-2012IN000450

PATIENT
  Sex: Female

DRUGS (4)
  1. JAKAFI [Suspect]
     Indication: MYELOFIBROSIS
     Dosage: 20 MG, BID
     Route: 048
     Dates: start: 20120131
  2. ASPIRIN [Concomitant]
     Dosage: 325 MG, UNK
     Route: 048
  3. ALLOPURINOL [Concomitant]
     Dosage: UNK MG, UNK
  4. CENTRUM [Concomitant]
     Dosage: UNK

REACTIONS (4)
  - Fatigue [Unknown]
  - Muscular weakness [Unknown]
  - Lethargy [Unknown]
  - Haemoglobin decreased [Not Recovered/Not Resolved]
